FAERS Safety Report 12335666 (Version 1)
Quarter: 2016Q2

REPORT INFORMATION
  Report Type: Report from Study
  Country: GB (occurrence: GB)
  Receive Date: 20160505
  Receipt Date: 20160505
  Transmission Date: 20160815
  Serious: Yes (Other)
  Sender: FDA-Public Use
  Company Number: GB-ROCHE-1723003

PATIENT
  Age: 74 Year
  Sex: Male

DRUGS (6)
  1. ESBRIET [Suspect]
     Active Substance: PIRFENIDONE
     Indication: IDIOPATHIC PULMONARY FIBROSIS
     Dosage: 3 TABS 3 TIMES A DAY
     Route: 048
     Dates: start: 201508
  2. ESBRIET [Suspect]
     Active Substance: PIRFENIDONE
     Dosage: 3 TIMES A DAY
     Route: 048
     Dates: start: 20141110, end: 20160315
  3. N-ACETYL CYSTEINE [Concomitant]
     Route: 048
  4. LANSOPRAZOLE. [Concomitant]
     Active Substance: LANSOPRAZOLE
     Route: 065
  5. ESBRIET [Suspect]
     Active Substance: PIRFENIDONE
     Dosage: DOSE REDUCED?2 TABS 3 TIMES A DAY
     Route: 048
  6. ESBRIET [Suspect]
     Active Substance: PIRFENIDONE
     Dosage: DOSE AND FREQUENCY (VARIABLE)
     Route: 048
     Dates: start: 20141227, end: 20160302

REACTIONS (6)
  - Gastrointestinal disorder [Recovering/Resolving]
  - Diarrhoea [Recovered/Resolved]
  - Hypertension [Recovered/Resolved]
  - Flatulence [Unknown]
  - Abdominal distension [Recovered/Resolved]
  - Lower respiratory tract infection [Unknown]

NARRATIVE: CASE EVENT DATE: 20150101
